APPROVED DRUG PRODUCT: DAUNORUBICIN HYDROCHLORIDE
Active Ingredient: DAUNORUBICIN HYDROCHLORIDE
Strength: EQ 20MG BASE/VIAL
Dosage Form/Route: INJECTABLE;INJECTION
Application: A065000 | Product #001 | TE Code: AP
Applicant: FRESENIUS KABI USA LLC
Approved: May 25, 1999 | RLD: No | RS: No | Type: RX